FAERS Safety Report 16447037 (Version 1)
Quarter: 2019Q2

REPORT INFORMATION
  Report Type: Spontaneous
  Country: US (occurrence: US)
  Receive Date: 20190618
  Receipt Date: 20190618
  Transmission Date: 20190711
  Serious: Yes (Other)
  Sender: FDA-Public Use
  Company Number: US-SHIRE-US201918349

PATIENT
  Sex: Male
  Weight: 1.91 kg

DRUGS (2)
  1. HUMAN NORMAL IMMUNOGLOBULIN [Suspect]
     Active Substance: HUMAN IMMUNOGLOBULIN G
     Indication: FOETAL EXPOSURE TIMING UNSPECIFIED
     Dosage: UNK
     Route: 064
  2. HUMAN NORMAL IMMUNOGLOBULIN [Suspect]
     Active Substance: HUMAN IMMUNOGLOBULIN G
     Dosage: 1 GRAM PER KILOGRAM FOR 2 DAYS
     Route: 042

REACTIONS (5)
  - Intraventricular haemorrhage neonatal [Unknown]
  - Phimosis [Unknown]
  - Premature baby [Unknown]
  - Foetal exposure during pregnancy [Unknown]
  - Adrenal insufficiency neonatal [Unknown]
